FAERS Safety Report 4527236-3 (Version None)
Quarter: 2004Q4

REPORT INFORMATION
  Report Type: 
  Country: None (occurrence: None)
  Receive Date: 20041214
  Receipt Date: 20041214
  Transmission Date: 20050328
  Serious: Yes (Other)
  Sender: FDA-Public Use
  Company Number: None

PATIENT
  Age: 18 Year
  Sex: Female
  Weight: 56.6996 kg

DRUGS (4)
  1. CIPRO [Suspect]
     Indication: SINUSITIS
     Dosage: 2 TSP TWICE DAILY
     Dates: start: 20041204, end: 20041205
  2. MICARDIS [Concomitant]
  3. FLORINEF [Concomitant]
  4. SYNTHROID [Concomitant]

REACTIONS (4)
  - ABDOMINAL PAIN UPPER [None]
  - BURNING SENSATION [None]
  - NAUSEA [None]
  - PHARMACEUTICAL PRODUCT COMPLAINT [None]
